FAERS Safety Report 15935777 (Version 1)
Quarter: 2019Q1

REPORT INFORMATION
  Report Type: Spontaneous
  Country: CN (occurrence: CN)
  Receive Date: 20190208
  Receipt Date: 20190208
  Transmission Date: 20190417
  Serious: Yes (Death)
  Sender: FDA-Public Use
  Company Number: CN-IMPAX LABORATORIES, LLC-2019-IPXL-00423

PATIENT
  Sex: Female

DRUGS (3)
  1. EPIRUBICIN HYDROCHLORIDE. [Suspect]
     Active Substance: EPIRUBICIN HYDROCHLORIDE
     Dosage: 75 MILLIGRAM/SQ. METER, IN 50 ML OF NORMAL SALINE
     Route: 042
  2. DOCETAXEL. [Suspect]
     Active Substance: DOCETAXEL
     Indication: TRIPLE NEGATIVE BREAST CANCER
     Dosage: 75 MILLIGRAM/SQ. METER
     Route: 013
  3. EPIRUBICIN HYDROCHLORIDE. [Suspect]
     Active Substance: EPIRUBICIN HYDROCHLORIDE
     Indication: TRIPLE NEGATIVE BREAST CANCER
     Dosage: 75 MILLIGRAM/SQ. METER, IN 50 ML OF NORMAL SALINE
     Route: 013

REACTIONS (1)
  - Breast cancer [Fatal]
